FAERS Safety Report 25058278 (Version 1)
Quarter: 2025Q1

REPORT INFORMATION
  Report Type: Spontaneous
  Country: US (occurrence: None)
  Receive Date: 20250308
  Receipt Date: 20250308
  Transmission Date: 20250408
  Serious: Yes (Hospitalization)
  Sender: FDA-CTU
  Company Number: None

PATIENT
  Age: 81 Year
  Sex: Male
  Weight: 91.3 kg

DRUGS (1)
  1. DARATUMUMAB\HYALURONIDASE-FIHJ [Suspect]
     Active Substance: DARATUMUMAB\HYALURONIDASE-FIHJ

REACTIONS (9)
  - Fall [None]
  - Head injury [None]
  - Joint dislocation [None]
  - Subdural haematoma [None]
  - Spinal compression fracture [None]
  - Blood ethanol increased [None]
  - Poisoning [None]
  - Refusal of treatment by patient [None]
  - Impaired driving ability [None]

NARRATIVE: CASE EVENT DATE: 20250203
